FAERS Safety Report 7706300-1 (Version None)
Quarter: 2011Q3

REPORT INFORMATION
  Report Type: 
  Country: None (occurrence: None)
  Receive Date: 20110824
  Receipt Date: 20110822
  Transmission Date: 20111222
  Serious: Yes (Other)
  Sender: FDA-Public Use
  Company Number: US-PFIZER INC-2011193844

PATIENT
  Sex: Female

DRUGS (2)
  1. CHAPSTICK LIP BALM [Suspect]
     Dosage: UNK
     Route: 061
     Dates: end: 20110801
  2. LUNESTA [Concomitant]
     Indication: SLEEP DISORDER
     Dosage: 3MG DAILY AT BEDTIME
     Route: 048

REACTIONS (2)
  - PERIPHERAL NERVE INJURY [None]
  - SURGERY [None]
